FAERS Safety Report 22036433 (Version 1)
Quarter: 2023Q1

REPORT INFORMATION
  Report Type: Spontaneous
  Country: IN (occurrence: IN)
  Receive Date: 20230225
  Receipt Date: 20230225
  Transmission Date: 20230417
  Serious: Yes (Other)
  Sender: FDA-Public Use
  Company Number: IN-drreddys-LIT/IND/23/0161581

PATIENT
  Age: 47 Year
  Sex: Female

DRUGS (14)
  1. CIPROFLOXACIN [Suspect]
     Active Substance: CIPROFLOXACIN
     Indication: Otitis media chronic
  2. CIPROFLOXACIN [Suspect]
     Active Substance: CIPROFLOXACIN
     Indication: Otitis externa
  3. BECLOMETHASONE DIPROPIONATE [Suspect]
     Active Substance: BECLOMETHASONE DIPROPIONATE
     Indication: Otitis media chronic
  4. BECLOMETHASONE DIPROPIONATE [Suspect]
     Active Substance: BECLOMETHASONE DIPROPIONATE
     Indication: Otitis externa
  5. NEOMYCIN [Suspect]
     Active Substance: NEOMYCIN
     Indication: Otitis media chronic
  6. NEOMYCIN [Suspect]
     Active Substance: NEOMYCIN
     Indication: Otitis externa
  7. CLOTRIMAZOLE [Suspect]
     Active Substance: CLOTRIMAZOLE
     Indication: Otitis media chronic
  8. CLOTRIMAZOLE [Suspect]
     Active Substance: CLOTRIMAZOLE
     Indication: Otitis externa
  9. LIDOCAINE HYDROCHLORIDE [Suspect]
     Active Substance: LIDOCAINE HYDROCHLORIDE
     Indication: Otitis media chronic
  10. LIDOCAINE HYDROCHLORIDE [Suspect]
     Active Substance: LIDOCAINE HYDROCHLORIDE
     Indication: Otitis externa
  11. FORMOTEROL [Concomitant]
     Active Substance: FORMOTEROL
     Indication: Asthma
  12. BUDESONIDE [Concomitant]
     Active Substance: BUDESONIDE
     Indication: Asthma
  13. AZELASTINE [Concomitant]
     Active Substance: AZELASTINE
     Indication: Asthma
  14. FLUTICASONE [Concomitant]
     Active Substance: FLUTICASONE
     Indication: Asthma

REACTIONS (2)
  - Nocardiosis [Recovered/Resolved]
  - Product use in unapproved indication [Unknown]
